FAERS Safety Report 4693767-9 (Version None)
Quarter: 2005Q2

REPORT INFORMATION
  Report Type: 
  Country: None (occurrence: None)
  Receive Date: 20050617
  Receipt Date: 20050510
  Transmission Date: 20051028
  Serious: Yes (Hospitalization)
  Sender: FDA-Public Use
  Company Number: FR-ABBOTT-05P-056-0300281-00

PATIENT
  Sex: Female

DRUGS (2)
  1. DEPAKOTE [Suspect]
     Indication: DRUG EXPOSURE DURING PREGNANCY
  2. CLOMIPRAMINE HCL [Suspect]
     Indication: DRUG EXPOSURE DURING PREGNANCY

REACTIONS (5)
  - ALPHA 1 FOETOPROTEIN INCREASED [None]
  - AMINO ACID LEVEL DECREASED [None]
  - CAFE AU LAIT SPOTS [None]
  - COORDINATION ABNORMAL [None]
  - DEVELOPMENTAL COORDINATION DISORDER [None]
